FAERS Safety Report 11888037 (Version 1)
Quarter: 2016Q1

REPORT INFORMATION
  Report Type: Spontaneous
  Country: US (occurrence: None)
  Receive Date: 20160104
  Receipt Date: 20160104
  Transmission Date: 20160526
  Serious: Yes (Other)
  Sender: FDA-Public Use
  Company Number: None

PATIENT
  Age: 72 Year
  Sex: Male

DRUGS (1)
  1. TESTOPEL [Suspect]
     Active Substance: TESTOSTERONE
     Indication: TESTICULAR FAILURE
     Dosage: 12 PELLETS, Q4MONTHS, SQ IMPLANT?
     Route: 058
     Dates: start: 20150916

REACTIONS (2)
  - Testicular atrophy [None]
  - Penile size reduced [None]

NARRATIVE: CASE EVENT DATE: 20151230
